FAERS Safety Report 4693756-4 (Version None)
Quarter: 2005Q2

REPORT INFORMATION
  Report Type: 
  Country: None (occurrence: None)
  Receive Date: 20050616
  Receipt Date: 20050607
  Transmission Date: 20051028
  Serious: Yes (Other)
  Sender: FDA-Public Use
  Company Number: 2005-06-0314

PATIENT
  Age: 35 Year
  Sex: Male

DRUGS (2)
  1. PEG-INTRON [Suspect]
     Indication: HEPATITIS C
     Dates: start: 20030101
  2. RIBAVIRIN [Suspect]
     Indication: HEPATITIS C
     Dosage: ORAL
     Route: 048
     Dates: start: 20030101

REACTIONS (16)
  - ALPHA 2 GLOBULIN INCREASED [None]
  - ANTI-THYROID ANTIBODY POSITIVE [None]
  - AUTOIMMUNE THYROIDITIS [None]
  - BLOOD CREATININE INCREASED [None]
  - BLOOD THYROID STIMULATING HORMONE INCREASED [None]
  - ERYTHEMA [None]
  - IMMUNOGLOBULINS INCREASED [None]
  - LIVEDO RETICULARIS [None]
  - MYALGIA [None]
  - OEDEMA PERIPHERAL [None]
  - ORCHITIS [None]
  - PYREXIA [None]
  - SKIN NODULE [None]
  - THYROXINE FREE DECREASED [None]
  - VASCULITIS NECROTISING [None]
  - WEIGHT DECREASED [None]
